FAERS Safety Report 24714299 (Version 1)
Quarter: 2024Q4

REPORT INFORMATION
  Report Type: Report from Study
  Country: CN (occurrence: CN)
  Receive Date: 20241209
  Receipt Date: 20241209
  Transmission Date: 20250115
  Serious: Yes (Other)
  Sender: GILEAD
  Company Number: CN-GILEAD-2024-0696101

PATIENT
  Age: 62 Year
  Sex: Male

DRUGS (3)
  1. SACITUZUMAB GOVITECAN-HZIY [Suspect]
     Active Substance: SACITUZUMAB GOVITECAN-HZIY
     Indication: Bladder cancer
     Dosage: 600MG D1
     Route: 041
     Dates: start: 20241123
  2. SACITUZUMAB GOVITECAN-HZIY [Suspect]
     Active Substance: SACITUZUMAB GOVITECAN-HZIY
     Dosage: 600MG D8
     Route: 041
     Dates: start: 20241201
  3. SINTILIMAB [Concomitant]
     Active Substance: SINTILIMAB
     Indication: Bladder cancer
     Dosage: 200 MG
     Route: 065
     Dates: start: 20241123

REACTIONS (5)
  - Myelosuppression [Unknown]
  - Diarrhoea [Recovering/Resolving]
  - Anaemia [Unknown]
  - White blood cell count decreased [Unknown]
  - Product use in unapproved indication [Unknown]

NARRATIVE: CASE EVENT DATE: 20240101
